FAERS Safety Report 6229665-9 (Version None)
Quarter: 2009Q2

REPORT INFORMATION
  Report Type: 
  Country: None (occurrence: None)
  Receive Date: 20090615
  Receipt Date: 20090611
  Transmission Date: 20091009
  Serious: Yes (Other)
  Sender: FDA-Public Use
  Company Number: B0578465A

PATIENT
  Sex: Female

DRUGS (4)
  1. AUGMENTIN '125' [Suspect]
     Indication: SINUSITIS
     Dosage: 1G SINGLE DOSE
     Route: 048
     Dates: start: 20060101, end: 20060101
  2. CORTANCYL [Suspect]
     Indication: SINUSITIS
     Dosage: 20MG SINGLE DOSE
     Route: 048
     Dates: start: 20060101, end: 20060101
  3. LEVOTHYROX [Concomitant]
     Indication: HYPOTHYROIDISM
     Route: 065
  4. PARIET [Concomitant]
     Route: 065

REACTIONS (2)
  - PRURITUS [None]
  - RASH ERYTHEMATOUS [None]
